FAERS Safety Report 15259770 (Version 1)
Quarter: 2018Q3

REPORT INFORMATION
  Report Type: Spontaneous
  Country: US (occurrence: US)
  Receive Date: 20180809
  Receipt Date: 20180809
  Transmission Date: 20181010
  Serious: No
  Sender: FDA-Public Use
  Company Number: US-MYLANLABS-2018M1058448

PATIENT
  Sex: Female
  Weight: 61 kg

DRUGS (1)
  1. ESTRADIOL TRANSDERMAL SYSTEM [Suspect]
     Active Substance: ESTRADIOL
     Indication: PRODUCT USED FOR UNKNOWN INDICATION
     Dosage: 1 DF, BIWEEKLY
     Route: 062

REACTIONS (5)
  - Vulvovaginal burning sensation [Recovered/Resolved]
  - Vaginal disorder [Recovered/Resolved]
  - Memory impairment [Unknown]
  - Anorectal discomfort [Recovered/Resolved]
  - Off label use [Unknown]
